FAERS Safety Report 10261721 (Version 2)
Quarter: 2014Q2

REPORT INFORMATION
  Report Type: Spontaneous
  Country: US (occurrence: US)
  Receive Date: 20140626
  Receipt Date: 20140626
  Transmission Date: 20141212
  Serious: Yes (Death, Hospitalization, Other)
  Sender: FDA-Public Use
  Company Number: US-AMGEN-USASP2014042346

PATIENT
  Age: 42 Year
  Sex: Female
  Weight: 72.56 kg

DRUGS (17)
  1. NEULASTA [Suspect]
     Indication: PRODUCT USED FOR UNKNOWN INDICATION
     Dosage: UNK
     Route: 065
  2. BLEOMYCIN [Concomitant]
     Indication: OVARIAN CANCER
     Dosage: UNK
     Dates: end: 201312
  3. ETOPOSIDE [Concomitant]
     Indication: OVARIAN CANCER
     Dosage: UNK
     Dates: end: 201312
  4. CISPLATIN [Concomitant]
     Indication: OVARIAN CANCER
     Dosage: UNK
     Dates: end: 201312
  5. SOLU MEDROL [Concomitant]
     Dosage: 40 MG, Q8H
     Route: 042
  6. ENOXAPARIN [Concomitant]
     Dosage: 40 MG, EVERY 24 HOURS
     Route: 058
  7. COLACE [Concomitant]
     Dosage: 100 MG, BID
  8. LACTULOSE [Concomitant]
     Dosage: 20 G, DAILY
  9. LANSOPRAZOLE [Concomitant]
     Dosage: 30 MG, DAILY
  10. MEROPENEM [Concomitant]
     Dosage: 1000 MG, EVERY 8 HOURS
  11. ZOFRAN                             /00955301/ [Concomitant]
     Dosage: 4 MG, EVERY 6 HOURS, P.R.N
  12. ALBUTEROL                          /00139501/ [Concomitant]
     Dosage: UNK UNK, AS NECESSARY
  13. FENTANYL [Concomitant]
     Dosage: 25 MUG, EVERY 30 P.R.N
     Route: 042
  14. DUONEB [Concomitant]
     Dosage: UNK UNK, AS NECESSARY
  15. VERSED [Concomitant]
     Dosage: 1 MG, EVERY HOUR, P.R.N
  16. OXYCODONE [Concomitant]
     Dosage: 5 MG EVERY 4 HOURS P.R.N
  17. VANCOMYCIN [Concomitant]
     Dosage: UNK

REACTIONS (17)
  - Death [Fatal]
  - Pulmonary toxicity [Unknown]
  - Pneumonia [Not Recovered/Not Resolved]
  - Ovarian cancer metastatic [Unknown]
  - Feeling cold [Unknown]
  - Cough [Unknown]
  - Wheezing [Unknown]
  - Anxiety [Unknown]
  - Fatigue [Unknown]
  - Anaemia [Unknown]
  - Poor quality sleep [Unknown]
  - Dry skin [Unknown]
  - Bronchial metaplasia [Unknown]
  - Fibrosis [Unknown]
  - Venoocclusive disease [Unknown]
  - Dyspnoea [Unknown]
  - Interstitial lung disease [Unknown]
